FAERS Safety Report 15231012 (Version 2)
Quarter: 2019Q3

REPORT INFORMATION
  Report Type: Spontaneous
  Country: US (occurrence: US)
  Receive Date: 20180802
  Receipt Date: 20190805
  Transmission Date: 20191004
  Serious: Yes (Other)
  Sender: FDA-Public Use
  Company Number: US-ACCORD-064220

PATIENT
  Age: 43 Year
  Sex: Female

DRUGS (20)
  1. DOCETAXEL ACCORD [Suspect]
     Active Substance: DOCETAXEL
     Indication: BREAST CANCER
     Dates: start: 20120719, end: 20121101
  2. SALBUTAMOL [Concomitant]
     Active Substance: ALBUTEROL
     Indication: WHEEZING
     Dosage: STRENGTH: 90 MCG/INH?2 PUFF(S), INHALE, EVERY 6 HOURS, AS NEEDED
     Route: 055
  3. DEXAMETHASONE. [Concomitant]
     Active Substance: DEXAMETHASONE
     Dosage: STRENGTH: 4 MG?2 TAB(S) PO (ORAL) BID
     Route: 048
  4. FLUCONAZOLE. [Concomitant]
     Active Substance: FLUCONAZOLE
     Dates: start: 20120620
  5. VICKS DAYQUIL [Concomitant]
     Active Substance: DEXTROMETHORPHAN HYDROBROMIDE\GUAIFENESIN
     Dates: start: 20050101
  6. NEULASTA [Concomitant]
     Active Substance: PEGFILGRASTIM
     Dosage: STRENGTH: 6 MG/0.6 ML
     Route: 058
  7. BUMEX [Concomitant]
     Active Substance: BUMETANIDE
     Indication: OEDEMA
     Dosage: STRENGTH: 1 MG?1 MG, TAKE BY MOUTH, ONCE A DAY, AS NEEDED
     Route: 048
  8. TYLENOL [Concomitant]
     Active Substance: ACETAMINOPHEN
     Dates: start: 20120620
  9. IBUPROFEN. [Concomitant]
     Active Substance: IBUPROFEN
     Route: 048
  10. PEPCID [Concomitant]
     Active Substance: FAMOTIDINE
     Dosage: STRENGTH: 20 MG?2 TAB(S), TAKE BY MOUTH, ONCE A DAY
     Route: 048
  11. QVAR [Concomitant]
     Active Substance: BECLOMETHASONE DIPROPIONATE
     Dosage: STRENGTH: 40 MCG/INH?2 PUFF(S), INHALE, 2 TIMES A DAY
     Route: 055
  12. TUMS [Concomitant]
     Active Substance: CALCIUM CARBONATE
  13. FLEXERIL [Concomitant]
     Active Substance: CYCLOBENZAPRINE HYDROCHLORIDE
     Indication: MUSCLE SPASMS
     Dosage: STRENGTH: 10 MG?1 TAB(S), TAKE BY MOUTH, 3 TIMES A DAY, AS NEEDED
     Route: 048
     Dates: start: 20120820
  14. PERCOCET [Concomitant]
     Active Substance: ACETAMINOPHEN\OXYCODONE HYDROCHLORIDE
     Dates: start: 20120620
  15. GAS-X [Concomitant]
     Active Substance: DIMETHICONE
     Dosage: 1 TAB(S), TAKE BY MOUTH, 4 TIMES A DAY AFTER MEALS AND AT BEDTIME
     Route: 048
  16. OXYCODONE HYDROCHLORIDE/PARACETAMOL [Concomitant]
     Indication: PAIN
     Dosage: STRENGTH: 325 MG - 5 MG?1 TAB(S), TAKE BY MOUTH, EVERY 6 HOURS, AS NEEDED
     Route: 048
  17. HYDROCODONE/PARACETAMOL [Concomitant]
     Dosage: STRENGTH: 325 MG - 5 MG?1 TAB(S), TAKE BY MOUTH, 4 TIMES A DAY
     Route: 048
  18. VICKS NYQUIL [Concomitant]
     Active Substance: ACETAMINOPHEN\DEXTROMETHORPHAN HYDROBROMIDE\DOXYLAMINE SUCCINATE
     Dates: start: 20050101
  19. PROCHLORPERAZINE. [Concomitant]
     Active Substance: PROCHLORPERAZINE
     Indication: NAUSEA
     Dosage: STRENGTH: 10 MG?1 TAB(S), TAKE BY MOUTH, 4 TIMES A DAY, AS NEEDED
     Route: 048
  20. ADVIL [Concomitant]
     Active Substance: IBUPROFEN
     Dates: start: 20050101

REACTIONS (1)
  - Alopecia [Not Recovered/Not Resolved]

NARRATIVE: CASE EVENT DATE: 20170912
